FAERS Safety Report 16679270 (Version 1)
Quarter: 2019Q3

REPORT INFORMATION
  Report Type: Spontaneous
  Country: IT (occurrence: IT)
  Receive Date: 20190807
  Receipt Date: 20190807
  Transmission Date: 20191004
  Serious: Yes (Hospitalization)
  Sender: FDA-Public Use
  Company Number: IT-009507513-1907ITA016255

PATIENT
  Age: 61 Year
  Sex: Male
  Weight: 65 kg

DRUGS (1)
  1. ERTAPENEM SODIUM [Suspect]
     Active Substance: ERTAPENEM SODIUM
     Indication: SKIN INFECTION
     Dosage: 500 MILLIGRAM, QD, FORMULATION: SOLUTION FOR INJECTION
     Route: 042
     Dates: start: 20190626, end: 20190712

REACTIONS (2)
  - Hallucination [Recovering/Resolving]
  - Sopor [Recovering/Resolving]

NARRATIVE: CASE EVENT DATE: 20190710
